FAERS Safety Report 6020153-1 (Version None)
Quarter: 2008Q4

REPORT INFORMATION
  Report Type: 
  Country: None (occurrence: None)
  Receive Date: 20081223
  Receipt Date: 20081223
  Transmission Date: 20090506
  Serious: Yes (Hospitalization)
  Sender: FDA-Public Use
  Company Number: None

PATIENT
  Age: 72 Year
  Sex: Female

DRUGS (1)
  1. DILT-CD [Suspect]
     Dosage: (DURATION: ONLY TOOK 1 CAPSULE)

REACTIONS (5)
  - CHEST DISCOMFORT [None]
  - DIARRHOEA [None]
  - MUSCULOSKELETAL PAIN [None]
  - PAIN IN EXTREMITY [None]
  - PARAESTHESIA [None]
